FAERS Safety Report 15353783 (Version 1)
Quarter: 2018Q3

REPORT INFORMATION
  Report Type: Report from Study
  Country: US (occurrence: US)
  Receive Date: 20180905
  Receipt Date: 20180905
  Transmission Date: 20181010
  Serious: Yes (Other)
  Sender: FDA-Public Use
  Company Number: US-SA-2018SA162177

PATIENT
  Sex: Male

DRUGS (2)
  1. LUMIZYME [Suspect]
     Active Substance: ALGLUCOSIDASE ALFA
     Route: 041
  2. AGALSIDASE BETA [Suspect]
     Active Substance: AGALSIDASE BETA

REACTIONS (2)
  - Fatigue [Unknown]
  - Pain [Unknown]
